FAERS Safety Report 7728294-5 (Version None)
Quarter: 2011Q3

REPORT INFORMATION
  Report Type: 
  Country: None (occurrence: None)
  Receive Date: 20110905
  Receipt Date: 20110831
  Transmission Date: 20111222
  Serious: Yes (Other)
  Sender: FDA-Public Use
  Company Number: PHHY2011JP77626

PATIENT

DRUGS (1)
  1. ZOMETA [Suspect]
     Indication: METASTASES TO BONE
     Dosage: UNKNOWN DOSE; EVERY FOUR WEEKS FOR SIX MONTHS
     Route: 041

REACTIONS (1)
  - CARDIOMYOPATHY [None]
